FAERS Safety Report 18810761 (Version 1)
Quarter: 2021Q1

REPORT INFORMATION
  Report Type: Spontaneous
  Country: DE (occurrence: DE)
  Receive Date: 20210129
  Receipt Date: 20210129
  Transmission Date: 20210419
  Serious: Yes (Other)
  Sender: FDA-Public Use
  Company Number: NVSC2020DE263258

PATIENT
  Age: 66 Year
  Sex: Female
  Weight: 55 kg

DRUGS (3)
  1. BEOVU [Suspect]
     Active Substance: BROLUCIZUMAB-DBLL
     Indication: NEOVASCULAR AGE-RELATED MACULAR DEGENERATION
     Dosage: UNK (3X)
     Route: 031
     Dates: start: 20200707
  2. BEOVU [Suspect]
     Active Substance: BROLUCIZUMAB-DBLL
     Dosage: UNK (3X)
     Route: 031
     Dates: start: 20200811
  3. BEOVU [Suspect]
     Active Substance: BROLUCIZUMAB-DBLL
     Dosage: UNK (3X)
     Route: 031
     Dates: start: 20200915

REACTIONS (8)
  - Choroidal sclerosis [Unknown]
  - Subretinal fibrosis [Unknown]
  - Vitreous floaters [Unknown]
  - Cataract [Unknown]
  - Vision blurred [Recovered/Resolved]
  - Vitritis [Recovered/Resolved]
  - Vitreous opacities [Unknown]
  - Macular pigmentation [Unknown]

NARRATIVE: CASE EVENT DATE: 20200917
